FAERS Safety Report 10209229 (Version 5)
Quarter: 2014Q3

REPORT INFORMATION
  Report Type: Spontaneous
  Country: AU (occurrence: AU)
  Receive Date: 20140530
  Receipt Date: 20140707
  Transmission Date: 20150326
  Serious: Yes (Death, Hospitalization)
  Sender: FDA-Public Use
  Company Number: AU-PFIZER INC-2014145193

PATIENT
  Age: 59 Year
  Sex: Male
  Weight: 150 kg

DRUGS (11)
  1. CIPROFLOXACIN HCL [Suspect]
     Active Substance: CIPROFLOXACIN HYDROCHLORIDE
     Dosage: UNK
  2. FLUCONAZOLE. [Concomitant]
     Active Substance: FLUCONAZOLE
     Dosage: UNK
  3. PERINDOPRIL-AMLODIPINE [Concomitant]
     Dosage: UNK
  4. LEPIRUDIN [Suspect]
     Active Substance: LEPIRUDIN
     Dosage: UNK
  5. MEROPENEM. [Suspect]
     Active Substance: MEROPENEM
     Dosage: UNK
  6. VANCOMYCIN HYDROCHLORIDE. [Suspect]
     Active Substance: VANCOMYCIN HYDROCHLORIDE
     Dosage: UNK
  7. ANIDULAFUNGIN [Suspect]
     Active Substance: ANIDULAFUNGIN
     Dosage: UNK
     Route: 042
  8. PIPERACILLIN/TAZOBACTAM [Suspect]
     Active Substance: PIPERACILLIN SODIUM\TAZOBACTAM SODIUM
     Dosage: UNK
  9. ATENOLOL. [Concomitant]
     Active Substance: ATENOLOL
     Dosage: UNK
  10. QUETIAPINE FUMARATE. [Suspect]
     Active Substance: QUETIAPINE FUMARATE
     Dosage: UNK
  11. INDAPAMIDE HEMIHYDRATE-PERINDOPRIL [Concomitant]
     Dosage: UNK

REACTIONS (5)
  - Septic shock [Unknown]
  - Rash maculo-papular [Unknown]
  - Cellulitis [Unknown]
  - Death [Fatal]
  - Pruritus [Unknown]

NARRATIVE: CASE EVENT DATE: 20121018
